FAERS Safety Report 12913503 (Version 2)
Quarter: 2017Q3

REPORT INFORMATION
  Report Type: Report from Study
  Country: None (occurrence: US)
  Receive Date: 20161104
  Receipt Date: 20170826
  Transmission Date: 20171127
  Serious: Yes (Other)
  Sender: FDA-Public Use
  Company Number: US-ABBVIE-16K-163-1766070-00

PATIENT
  Sex: Female
  Weight: 86.26 kg

DRUGS (5)
  1. HUMIRA [Suspect]
     Active Substance: ADALIMUMAB
     Indication: HIDRADENITIS
     Dosage: LOADING DOSE
     Route: 058
     Dates: start: 20151211, end: 20151211
  2. HUMIRA [Suspect]
     Active Substance: ADALIMUMAB
     Dosage: LOADING DOSE
     Route: 058
     Dates: start: 20151225, end: 20151225
  3. DOXYCYCLINE. [Concomitant]
     Active Substance: DOXYCYCLINE
     Indication: HIDRADENITIS
  4. HUMIRA [Suspect]
     Active Substance: ADALIMUMAB
     Route: 058
     Dates: start: 20160112, end: 20170811
  5. PREDNISONE. [Concomitant]
     Active Substance: PREDNISONE
     Indication: HIDRADENITIS

REACTIONS (26)
  - Migraine [Unknown]
  - Blood urine [Unknown]
  - Ear discomfort [Unknown]
  - Limb discomfort [Unknown]
  - Nausea [Recovered/Resolved]
  - Fatigue [Recovered/Resolved]
  - Musculoskeletal stiffness [Unknown]
  - Hidradenitis [Recovering/Resolving]
  - Rash macular [Unknown]
  - Fatigue [Not Recovered/Not Resolved]
  - Stress [Unknown]
  - Back pain [Unknown]
  - Night sweats [Unknown]
  - Abdominal distension [Unknown]
  - Abdominal pain [Recovered/Resolved]
  - Antiphospholipid antibodies positive [Recovered/Resolved]
  - Fistula [Recovering/Resolving]
  - Depression [Not Recovered/Not Resolved]
  - Pain [Unknown]
  - Musculoskeletal chest pain [Unknown]
  - Malaise [Recovered/Resolved]
  - Dizziness [Unknown]
  - Memory impairment [Unknown]
  - Cough [Unknown]
  - Bruxism [Unknown]
  - Gastroenteritis viral [Unknown]

NARRATIVE: CASE EVENT DATE: 2016
